FAERS Safety Report 4278184-8 (Version None)
Quarter: 2004Q1

REPORT INFORMATION
  Report Type: 
  Country: None (occurrence: None)
  Receive Date: 20040121
  Receipt Date: 20040107
  Transmission Date: 20041129
  Serious: Yes (Disabling)
  Sender: FDA-Public Use
  Company Number: 04P-013-0246512-00

PATIENT
  Age: 66 Year
  Sex: Male
  Weight: 113.2 kg

DRUGS (6)
  1. MERIDIA [Suspect]
     Indication: OBESITY
     Dosage: ORAL
     Route: 048
     Dates: start: 20030917
  2. GLUCOPHAGE [Concomitant]
  3. ZOCOR [Concomitant]
  4. IRBESARTAN [Concomitant]
  5. METOPROLOL SUCCINATE [Concomitant]
  6. ACETYLSALICYLIC ACID SRT [Concomitant]

REACTIONS (5)
  - CRANIAL NERVE PALSIES MULTIPLE [None]
  - DIABETES MELLITUS [None]
  - DIPLOPIA [None]
  - NEUROPATHY [None]
  - VISUAL DISTURBANCE [None]
